FAERS Safety Report 10098861 (Version 1)
Quarter: 2014Q2

REPORT INFORMATION
  Report Type: Spontaneous
  Country: KR (occurrence: KR)
  Receive Date: 20140423
  Receipt Date: 20140423
  Transmission Date: 20141212
  Serious: Yes (Life-Threatening, Hospitalization, Other)
  Sender: FDA-Public Use
  Company Number: KR-WATSON-2014-07678

PATIENT
  Age: 73 Year
  Sex: Male

DRUGS (2)
  1. WARFARIN (UNKNOWN) [Suspect]
     Indication: PORTAL VEIN THROMBOSIS
     Dosage: UNKNOWN
     Route: 065
  2. HEPARIN (UNKNOWN) [Suspect]
     Indication: PORTAL VEIN THROMBOSIS
     Dosage: UNKNOWN
     Route: 042

REACTIONS (2)
  - Haematemesis [Recovered/Resolved]
  - Pancreatic cyst rupture [Recovered/Resolved]
